FAERS Safety Report 15142129 (Version 1)
Quarter: 2018Q3

REPORT INFORMATION
  Report Type: Spontaneous
  Country: HR (occurrence: HR)
  Receive Date: 20180713
  Receipt Date: 20180713
  Transmission Date: 20181010
  Serious: Yes (Other)
  Sender: FDA-Public Use
  Company Number: HR-TEVA-2018-HR-925313

PATIENT
  Sex: Female

DRUGS (2)
  1. PRAXITEN 15 [Suspect]
     Active Substance: OXAZEPAM
     Route: 048
     Dates: start: 20180325, end: 20180325
  2. CONCOR [Suspect]
     Active Substance: BISOPROLOL FUMARATE
     Route: 048
     Dates: start: 20180325, end: 20180325

REACTIONS (4)
  - Intentional overdose [Unknown]
  - Loss of consciousness [Recovered/Resolved]
  - Suicide attempt [Unknown]
  - Bradycardia [Unknown]

NARRATIVE: CASE EVENT DATE: 20180325
